FAERS Safety Report 10014228 (Version 2)
Quarter: 2014Q1

REPORT INFORMATION
  Report Type: Spontaneous
  Country: IT (occurrence: IT)
  Receive Date: 20140317
  Receipt Date: 20140317
  Transmission Date: 20141002
  Serious: Yes (Hospitalization, Other)
  Sender: FDA-Public Use
  Company Number: IT-JNJFOC-20140108147

PATIENT
  Age: 68 Year
  Sex: Male
  Weight: 75 kg

DRUGS (8)
  1. REMICADE [Suspect]
     Indication: COLITIS ULCERATIVE
     Route: 042
     Dates: start: 20130531, end: 20140203
  2. RANIDIL [Concomitant]
     Indication: PREMEDICATION
     Route: 042
     Dates: start: 20130712, end: 20130712
  3. URBASON [Concomitant]
     Indication: PREMEDICATION
     Route: 042
     Dates: start: 20130712, end: 20130712
  4. EUTIROX [Concomitant]
     Route: 048
     Dates: start: 20130612, end: 20130901
  5. SOLOSA [Concomitant]
     Route: 048
     Dates: start: 20110101, end: 20130901
  6. ACTOS [Concomitant]
     Route: 048
     Dates: start: 20130101
  7. PROVISACOR [Concomitant]
     Route: 048
     Dates: start: 20110101
  8. BLOPRESS [Concomitant]
     Route: 048
     Dates: start: 20060101

REACTIONS (3)
  - Hypersensitivity vasculitis [Unknown]
  - Pustular psoriasis [Unknown]
  - Psoriasis [Recovering/Resolving]
